FAERS Safety Report 9308837 (Version 1)
Quarter: 2013Q2

REPORT INFORMATION
  Report Type: Spontaneous
  Country: US (occurrence: US)
  Receive Date: 20130524
  Receipt Date: 20130524
  Transmission Date: 20140414
  Serious: Yes (Life-Threatening, Hospitalization, Other)
  Sender: FDA-Public Use
  Company Number: US-ASTRAZENECA-2013SE35481

PATIENT
  Age: 73 Year
  Sex: Male
  Weight: 90.7 kg

DRUGS (7)
  1. TOPROL-XL [Suspect]
     Indication: ATRIAL FIBRILLATION
     Route: 048
     Dates: start: 2005
  2. TOPROL-XL [Suspect]
     Indication: PALPITATIONS
     Route: 048
     Dates: start: 2005
  3. TOPROL-XL [Suspect]
     Indication: ATRIAL FIBRILLATION
     Route: 048
     Dates: start: 2005
  4. TOPROL-XL [Suspect]
     Indication: PALPITATIONS
     Route: 048
     Dates: start: 2005
  5. TOPROL-XL [Suspect]
     Indication: ATRIAL FIBRILLATION
     Route: 048
     Dates: start: 2005
  6. TOPROL-XL [Suspect]
     Indication: PALPITATIONS
     Route: 048
     Dates: start: 2005
  7. CONSUMER DID NOT WISH TO DISCLOSE AT THIS TIME [Concomitant]

REACTIONS (6)
  - Cardiac arrest [Recovered/Resolved with Sequelae]
  - Palpitations [Not Recovered/Not Resolved]
  - Atrial fibrillation [Recovered/Resolved with Sequelae]
  - Stress [Unknown]
  - Off label use [Not Recovered/Not Resolved]
  - Off label use [Not Recovered/Not Resolved]
